FAERS Safety Report 9812180 (Version 2)
Quarter: 2014Q3

REPORT INFORMATION
  Report Type: Spontaneous
  Country: US (occurrence: US)
  Receive Date: 20140112
  Receipt Date: 20140725
  Transmission Date: 20150326
  Serious: Yes (Hospitalization, Other)
  Sender: FDA-Public Use
  Company Number: US-009507513-1401USA004119

PATIENT
  Sex: Female
  Weight: 74.38 kg

DRUGS (1)
  1. NUVARING [Suspect]
     Active Substance: ETHINYL ESTRADIOL\ETONOGESTREL
     Indication: MENORRHAGIA
     Dosage: UNK
     Route: 067
     Dates: start: 201203, end: 20120407

REACTIONS (14)
  - Thrombectomy [Unknown]
  - Dyslipidaemia [Unknown]
  - Cerebral haemorrhage [Recovering/Resolving]
  - Vena cava filter insertion [Unknown]
  - Depression [Unknown]
  - Endometrial ablation [Unknown]
  - Anxiety [Unknown]
  - Cerebrovascular accident [Recovering/Resolving]
  - Aneurysm [Unknown]
  - Deep vein thrombosis [Unknown]
  - Deep vein thrombosis [Unknown]
  - Off label use [Unknown]
  - Thrombophlebitis [Recovering/Resolving]
  - Panic attack [Unknown]

NARRATIVE: CASE EVENT DATE: 20120407
